FAERS Safety Report 9424951 (Version 1)
Quarter: 2013Q3

REPORT INFORMATION
  Report Type: Spontaneous
  Country: US (occurrence: US)
  Receive Date: 20130729
  Receipt Date: 20130729
  Transmission Date: 20140515
  Serious: No
  Sender: FDA-Public Use
  Company Number: US-PFIZER INC-2013219944

PATIENT
  Age: 80 Year
  Sex: Female
  Weight: 56.2 kg

DRUGS (5)
  1. CHANTIX [Suspect]
     Indication: SMOKING CESSATION THERAPY
     Dosage: UNK
     Dates: end: 2012
  2. ACYCLOVIR [Concomitant]
     Dosage: 100 MG, DAILY
  3. CITALOPRAM [Concomitant]
     Dosage: 20 MG, 2X/DAY
  4. DILTIAZEM [Concomitant]
     Dosage: 120 MG, DAILY
  5. LEVOTHYROXINE [Concomitant]
     Dosage: 50 UG, UNK

REACTIONS (2)
  - Alopecia [Not Recovered/Not Resolved]
  - Dizziness [Not Recovered/Not Resolved]
